FAERS Safety Report 20054777 (Version 1)
Quarter: 2021Q4

REPORT INFORMATION
  Report Type: Report from Study
  Country: US (occurrence: US)
  Receive Date: 20211110
  Receipt Date: 20211110
  Transmission Date: 20220303
  Serious: Yes (Hospitalization)
  Sender: FDA-Public Use
  Company Number: US-BRISTOL-MYERS SQUIBB COMPANY-BMS-2021-117608

PATIENT

DRUGS (2)
  1. NIVOLUMAB [Suspect]
     Active Substance: NIVOLUMAB
     Indication: Lung adenocarcinoma
     Dosage: UNK
     Route: 065
     Dates: end: 20211102
  2. RIGOSERTIB [Suspect]
     Active Substance: RIGOSERTIB
     Indication: Lung adenocarcinoma
     Dosage: UNK
     Route: 065
     Dates: end: 20211102

REACTIONS (2)
  - Constipation [Unknown]
  - Decreased appetite [Unknown]

NARRATIVE: CASE EVENT DATE: 20211103
